FAERS Safety Report 8899451 (Version 1)
Quarter: 2012Q4

REPORT INFORMATION
  Report Type: 
  Country: US (occurrence: US)
  Receive Date: 20121108
  Receipt Date: 20121108
  Transmission Date: 20130627
  Serious: No
  Sender: FDA-Public Use
  Company Number: US-AMGEN-USASP2012036177

PATIENT
  Age: 55 Year
  Sex: Female
  Weight: 65.76 kg

DRUGS (4)
  1. ENBREL [Suspect]
     Indication: PRODUCT USED FOR UNKNOWN INDICATION
     Dosage: 50 mg, qwk
     Route: 058
  2. ASPIRIN [Concomitant]
     Dosage: 81 mg, UNK
  3. TYLENOL /00020001/ [Concomitant]
     Dosage: 500 mg, UNK
  4. TORADOL [Concomitant]
     Dosage: 10 mg, UNK

REACTIONS (3)
  - Respiratory tract congestion [Recovered/Resolved]
  - Upper respiratory tract infection [Recovered/Resolved]
  - Pharyngitis [Recovered/Resolved]
